FAERS Safety Report 7040591-8 (Version None)
Quarter: 2010Q4

REPORT INFORMATION
  Report Type: 
  Country: None (occurrence: None)
  Receive Date: 20101012
  Receipt Date: 20101008
  Transmission Date: 20110411
  Serious: Yes (Other)
  Sender: FDA-Public Use
  Company Number: JP-BRISTOL-MYERS SQUIBB COMPANY-15317043

PATIENT
  Age: 73 Year
  Sex: Female

DRUGS (4)
  1. WARFARIN SODIUM [Suspect]
     Indication: ATRIAL FIBRILLATION
     Dosage: INITIAL DOSE 5MG/D 2003;REDU DOSE 3MG/D-11MAR03;STOP08APR05;RED1MG/D-12APR05;INC2MG/D; RED1.5MG/D
     Dates: start: 20030101
  2. WARFARIN SODIUM [Interacting]
     Indication: MITRAL VALVE INCOMPETENCE
     Dosage: INITIAL DOSE 5MG/D 2003;REDU DOSE 3MG/D-11MAR03;STOP08APR05;RED1MG/D-12APR05;INC2MG/D; RED1.5MG/D
     Dates: start: 20030101
  3. CAPECITABINE [Interacting]
     Indication: BREAST CANCER RECURRENT
     Route: 048
     Dates: start: 20050303, end: 20050401
  4. DOXIFLURIDINE [Interacting]
     Indication: BREAST CANCER
     Dosage: ALSO GIVEN ON 27APR05
     Route: 048
     Dates: start: 20030401

REACTIONS (6)
  - BREAST CANCER [None]
  - DRUG INTERACTION [None]
  - FATIGUE [None]
  - INTERNATIONAL NORMALISED RATIO INCREASED [None]
  - POTENTIATING DRUG INTERACTION [None]
  - VISION BLURRED [None]
